FAERS Safety Report 12612588 (Version 1)
Quarter: 2016Q3

REPORT INFORMATION
  Report Type: Spontaneous
  Country: None (occurrence: US)
  Receive Date: 20160801
  Receipt Date: 20160801
  Transmission Date: 20161109
  Serious: No
  Sender: FDA-Public Use
  Company Number: US-MATRIXX INITIATIVES, INC.-1055748

PATIENT
  Age: 9 Year
  Sex: Male
  Weight: 102.27 kg

DRUGS (1)
  1. ZICAM COLD REMEDY NASAL SWABS (ZINC) [Suspect]
     Active Substance: ZINC ACETATE\ZINC GLUCONATE
     Indication: MULTIPLE ALLERGIES
     Route: 045

REACTIONS (2)
  - Anosmia [None]
  - Nasal discomfort [None]
